FAERS Safety Report 4900963-1 (Version None)
Quarter: 2006Q1

REPORT INFORMATION
  Report Type: 
  Country: None (occurrence: None)
  Receive Date: 20060201
  Receipt Date: 20060112
  Transmission Date: 20060701
  Serious: Yes (Hospitalization)
  Sender: FDA-Public Use
  Company Number: CA200601002398

PATIENT
  Age: 41 Year
  Sex: Female

DRUGS (14)
  1. FORTEO [Suspect]
     Indication: OSTEOPOROSIS
     Dosage: 20  UG, DAILY (1/D)
     Dates: start: 20041223
  2. FORTEO PEN (250MCG/ML) [Concomitant]
  3. URSODIOL (URSODEOXYCHOLIC ACID) [Concomitant]
  4. LEVOTHYROXINE SODIUM [Concomitant]
  5. FUROSEMIDE [Concomitant]
  6. SPIROLONE (SPIRONOLACTONE) [Concomitant]
  7. CYCLOPHOSPHAMIDE [Concomitant]
  8. NEXIUM [Concomitant]
  9. INSULIN [Concomitant]
  10. B12  RECIP            (CYANOCOBALAMIN-TANNIN COMPLEX) [Concomitant]
  11. TALWIN [Concomitant]
  12. GRAVOL TAB [Concomitant]
  13. KEFLEX [Concomitant]
  14. DOMPERIDONE (DOMPERIDONE) [Concomitant]

REACTIONS (3)
  - ERYTHEMA [None]
  - MUSCLE SPASMS [None]
  - RASH [None]
